FAERS Safety Report 8468853-8 (Version None)
Quarter: 2012Q2

REPORT INFORMATION
  Report Type: 
  Country: None (occurrence: None)
  Receive Date: 20120607
  Receipt Date: 20120529
  Transmission Date: 20120825
  Serious: Yes (Life-Threatening, Hospitalization)
  Sender: FDA-Public Use
  Company Number: AEGBR201200300

PATIENT
  Age: 62 Year
  Sex: Female

DRUGS (3)
  1. IMMUNE GLOBULIN INTRAVENOUS (HUMAN) [Suspect]
     Indication: PYODERMA GANGRENOSUM
     Dosage: 24 GM;QOD;IV
     Route: 042
     Dates: start: 20120503, end: 20120505
  2. GENTAMICIN [Concomitant]
  3. GENTAMICIN [Suspect]
     Indication: INFECTION
     Dosage: ;IV
     Route: 042

REACTIONS (1)
  - RENAL FAILURE ACUTE [None]
